FAERS Safety Report 20003560 (Version 1)
Quarter: 2021Q4

REPORT INFORMATION
  Report Type: Spontaneous
  Country: SA (occurrence: SA)
  Receive Date: 20211028
  Receipt Date: 20211028
  Transmission Date: 20220303
  Serious: Yes (Other)
  Sender: FDA-Public Use
  Company Number: SA-UNICHEM PHARMACEUTICALS (USA) INC-UCM202110-000990

PATIENT
  Age: 80 Year
  Sex: Female

DRUGS (1)
  1. BACLOFEN [Suspect]
     Active Substance: BACLOFEN
     Indication: Product used for unknown indication
     Dosage: SINGLE DOSE WHICH IS LOWER THAN 10 MG

REACTIONS (1)
  - Toxic encephalopathy [Unknown]
